FAERS Safety Report 7956156-7 (Version None)
Quarter: 2011Q4

REPORT INFORMATION
  Report Type: 
  Country: None (occurrence: None)
  Receive Date: 20111116
  Receipt Date: 20111110
  Transmission Date: 20120403
  Serious: Yes (Hospitalization)
  Sender: FDA-Public Use
  Company Number: 2011030223

PATIENT
  Age: 64 Year
  Sex: Female
  Weight: 56.6996 kg

DRUGS (13)
  1. AMBIEN [Concomitant]
  2. ACETAMINOPHEN [Concomitant]
  3. PREDNISONE TAB [Concomitant]
  4. ZITHROMAX [Concomitant]
  5. ZOLOFT [Concomitant]
  6. DRONABINOL [Concomitant]
  7. LOMOTIL [Concomitant]
  8. HIZENTRA [Suspect]
     Indication: IMMUNODEFICIENCY COMMON VARIABLE
     Dosage: (SUBCUTANEOUS), (9 G 1X/WEEK, (45 ML) OVER 1-2 HOURS SUBCUTANEOUS), (SUBCUTANEOUS)
     Route: 058
     Dates: start: 20110404
  9. HIZENTRA [Suspect]
  10. ATIVAN [Concomitant]
  11. PANTOPRAZOLE [Concomitant]
  12. CIPROFLOXACIN [Concomitant]
  13. ONDANSETRON [Concomitant]

REACTIONS (1)
  - BACTERIAL INFECTION [None]
